FAERS Safety Report 18536248 (Version 2)
Quarter: 2022Q4

REPORT INFORMATION
  Report Type: Spontaneous
  Country: US (occurrence: US)
  Receive Date: 20201123
  Receipt Date: 20221012
  Transmission Date: 20230113
  Serious: Yes (Other)
  Sender: FDA-Public Use
  Company Number: US-NOVARTISPH-NVSC2020US312476

PATIENT
  Age: 30 Year
  Sex: Female

DRUGS (5)
  1. MYCOPHENOLATE MOFETIL [Suspect]
     Active Substance: MYCOPHENOLATE MOFETIL
     Indication: Retinal vasculitis
     Dosage: 1 G, BID
     Route: 065
  2. MYCOPHENOLATE MOFETIL [Suspect]
     Active Substance: MYCOPHENOLATE MOFETIL
     Dosage: 1.5 G, BID (ESCALATED OVER 2 MONTHS)
     Route: 065
  3. PREDNISOLONE [Concomitant]
     Active Substance: PREDNISOLONE
     Indication: Retinal vasculitis
     Dosage: 40 MG, QD
     Route: 065
  4. PREDNISOLONE [Concomitant]
     Active Substance: PREDNISOLONE
     Dosage: 5 MG, QD
     Route: 065
  5. OZURDEX [Concomitant]
     Active Substance: DEXAMETHASONE
     Indication: Retinal vascular disorder
     Dosage: 0.7 MG, IMPLANT
     Route: 031

REACTIONS (3)
  - Retinal vasculitis [Unknown]
  - Condition aggravated [Unknown]
  - Product use in unapproved indication [Unknown]
